FAERS Safety Report 5335939-6 (Version None)
Quarter: 2007Q2

REPORT INFORMATION
  Report Type: 
  Country: None (occurrence: None)
  Receive Date: 20070301
  Receipt Date: 20061215
  Transmission Date: 20071010
  Serious: Yes (Other)
  Sender: FDA-Public Use
  Company Number: US200612003106

PATIENT
  Age: 25 Year
  Sex: Female

DRUGS (1)
  1. SYMBYAX [Suspect]
     Indication: STRESS
     Dosage: D/F
     Dates: start: 20061206

REACTIONS (7)
  - ANXIETY [None]
  - CHEST PAIN [None]
  - DIZZINESS [None]
  - DRUG INEFFECTIVE [None]
  - INSOMNIA [None]
  - STRESS [None]
  - TREMOR [None]
